FAERS Safety Report 6649797-0 (Version None)
Quarter: 2010Q1

REPORT INFORMATION
  Report Type: 
  Country: None (occurrence: None)
  Receive Date: 20100322
  Receipt Date: 20100317
  Transmission Date: 20100710
  Serious: Yes (Hospitalization)
  Sender: FDA-Public Use
  Company Number: SP02843

PATIENT

DRUGS (2)
  1. APRISO [Suspect]
     Dosage: ORAL
     Route: 048
  2. REMICADE [Suspect]
     Dosage: INTRAVENOUS
     Route: 042

REACTIONS (1)
  - PNEUMONITIS [None]
